FAERS Safety Report 24631508 (Version 1)
Quarter: 2024Q4

REPORT INFORMATION
  Report Type: Spontaneous
  Country: FR (occurrence: FR)
  Receive Date: 20241118
  Receipt Date: 20241118
  Transmission Date: 20250114
  Serious: Yes (Life-Threatening)
  Sender: NOVARTIS
  Company Number: None

PATIENT
  Age: 33 Year
  Sex: Female
  Weight: 55 kg

DRUGS (4)
  1. TEGRETOL [Suspect]
     Active Substance: CARBAMAZEPINE
     Indication: Medication error
     Dosage: 400 MG, ONCE/SINGLE (COMPRIME PELLICULE SECABLE A LIBERATION PROLONGEE)
     Route: 048
     Dates: start: 20230521, end: 20230521
  2. LOXAPINE [Suspect]
     Active Substance: LOXAPINE
     Indication: Medication error
     Dosage: 75 MG, ONCE/SINGLE
     Route: 048
     Dates: start: 20230521, end: 20230521
  3. OXAZEPAM [Suspect]
     Active Substance: OXAZEPAM
     Indication: Medication error
     Dosage: 10 MG, ONCE/SINGLE
     Route: 048
     Dates: start: 20230521, end: 20230521
  4. IMOVANE [Suspect]
     Active Substance: ZOPICLONE
     Indication: Medication error
     Dosage: 3.75 MG, ONCE/SINGLE
     Route: 048
     Dates: start: 20230521, end: 20230521

REACTIONS (5)
  - Coma [Recovered/Resolved]
  - Hypotension [Recovered/Resolved]
  - Mydriasis [Recovered/Resolved]
  - Bradycardia [Recovered/Resolved]
  - Wrong patient received product [Recovered/Resolved]

NARRATIVE: CASE EVENT DATE: 20230521
